FAERS Safety Report 10542172 (Version 1)
Quarter: 2014Q4

REPORT INFORMATION
  Report Type: Spontaneous
  Country: BR (occurrence: BR)
  Receive Date: 20141024
  Receipt Date: 20141024
  Transmission Date: 20150529
  Serious: Yes (Other)
  Sender: FDA-Public Use
  Company Number: BR-ELI_LILLY_AND_COMPANY-BR201410004813

PATIENT
  Sex: Male
  Weight: 93 kg

DRUGS (17)
  1. HUMULIN R [Suspect]
     Active Substance: INSULIN HUMAN
     Dosage: 10 IU, EACH EVENING
     Route: 058
     Dates: end: 201410
  2. PYRIDOXAMINE HYDROCHLORIDE\THIAMINE HYDROCHLORIDE\CYANOCOBALAMIN [Concomitant]
     Active Substance: CYANOCOBALAMIN\PYRIDOXAMINE HYDROCHLORIDE\THIAMINE HYDROCHLORIDE
     Indication: NEURITIS
     Dosage: UNK, UNKNOWN
     Route: 065
  3. HUMULIN R [Suspect]
     Active Substance: INSULIN HUMAN
     Indication: DIABETES MELLITUS
     Dosage: 10 IU, EACH MORNING
     Route: 058
     Dates: end: 201410
  4. AMLODIPIN                          /00972401/ [Concomitant]
     Active Substance: AMLODIPINE BESYLATE
     Dosage: 5 MG, UNKNOWN
     Route: 065
  5. LOSARTAN [Concomitant]
     Active Substance: LOSARTAN
     Dosage: UNK, UNKNOWN
     Route: 065
  6. HUMULIN N [Suspect]
     Active Substance: INSULIN HUMAN
     Indication: DIABETES MELLITUS
     Dosage: 60 IU, EACH MORNING
     Route: 058
     Dates: start: 2007, end: 201410
  7. LIPLESS [Concomitant]
     Active Substance: CIPROFIBRATE
     Dosage: UNK, UNKNOWN
     Route: 065
  8. SUSTRATE [Concomitant]
     Active Substance: PROPATYL NITRATE
     Dosage: UNK, UNKNOWN
  9. SOMALGIN [Concomitant]
     Active Substance: ASPIRIN\DIHYDROXYALUMINUM AMINOACETATE ANHYDROUS\MAGNESIUM CARBONATE
     Indication: PROPHYLAXIS AGAINST GASTROINTESTINAL ULCER
     Dosage: 81 MG, UNKNOWN
     Route: 065
  10. ALOPURINOL [Concomitant]
     Active Substance: ALLOPURINOL
     Dosage: UNK, UNKNOWN
     Route: 065
  11. ATENSINA [Concomitant]
     Active Substance: CLONIDINE
     Dosage: 0.2 MG, UNKNOWN
     Route: 065
  12. THIOCTACID                         /00213801/ [Concomitant]
     Active Substance: .ALPHA.-LIPOIC ACID
     Indication: NEURITIS
  13. HUMULIN N [Suspect]
     Active Substance: INSULIN HUMAN
     Dosage: 50 IU, EACH EVENING
     Route: 058
     Dates: start: 2007, end: 201410
  14. HUMALOG [Suspect]
     Active Substance: INSULIN LISPRO
     Indication: DIABETES MELLITUS
     Dosage: 30 IU, EACH MORNING
     Route: 065
     Dates: start: 201410
  15. DIOSMIN [Concomitant]
     Active Substance: DIOSMIN
     Dosage: UNK, UNKNOWN
     Route: 065
  16. GALVUS MET [Suspect]
     Active Substance: METFORMIN HYDROCHLORIDE\VILDAGLIPTIN
     Indication: PRODUCT USED FOR UNKNOWN INDICATION
     Dosage: UNK, UNKNOWN
     Route: 065
  17. ROSUVASTATINA                      /01588601/ [Concomitant]
     Indication: BLOOD PRESSURE
     Dosage: 5 MG, UNKNOWN
     Route: 065

REACTIONS (9)
  - Diabetes mellitus inadequate control [Unknown]
  - Spinal disorder [Unknown]
  - Weight increased [Not Recovered/Not Resolved]
  - Venous occlusion [Unknown]
  - Neuritis [Unknown]
  - Hypoglycaemia [Recovered/Resolved]
  - Paraesthesia [Unknown]
  - Renal disorder [Unknown]
  - Abdominal discomfort [Not Recovered/Not Resolved]

NARRATIVE: CASE EVENT DATE: 2009
